FAERS Safety Report 5266962-8 (Version None)
Quarter: 2007Q1

REPORT INFORMATION
  Report Type: 
  Country: None (occurrence: None)
  Receive Date: 20070316
  Receipt Date: 20011001
  Transmission Date: 20070707
  Serious: Yes (Life-Threatening)
  Sender: FDA-Public Use
  Company Number: US-BRISTOL-MYERS SQUIBB COMPANY-13550439

PATIENT
  Age: 29 Year
  Sex: Male

DRUGS (6)
  1. SUSTIVA [Suspect]
     Indication: HIV INFECTION
     Dates: start: 19980318, end: 19980415
  2. ZALCITABINE [Concomitant]
     Dates: end: 19980416
  3. PREVEON [Concomitant]
     Dates: end: 19980416
  4. RITONAVIR [Concomitant]
     Dates: end: 19980416
  5. SAQUINAVIR [Concomitant]
     Dates: end: 19980416
  6. HYDROXYUREA [Concomitant]
     Dates: end: 19980416

REACTIONS (1)
  - BLOOD CREATINE PHOSPHOKINASE INCREASED [None]
